FAERS Safety Report 7678521-8 (Version None)
Quarter: 2011Q3

REPORT INFORMATION
  Report Type: 
  Country: None (occurrence: None)
  Receive Date: 20110811
  Receipt Date: 20110802
  Transmission Date: 20111222
  Serious: Yes (Hospitalization, Other)
  Sender: FDA-Public Use
  Company Number: JP-PFIZER INC-2011115280

PATIENT
  Age: 68 Year
  Sex: Male

DRUGS (9)
  1. LIPITOR [Suspect]
     Indication: HYPERLIPIDAEMIA
     Dosage: 10 MG, 1X/DAY
     Route: 048
     Dates: start: 20101201
  2. PLAVIX [Suspect]
     Indication: POLYURIA
     Dosage: 75 MG, 1X/DAY
     Route: 048
     Dates: start: 20101201, end: 20110410
  3. LANSOPRAZOLE [Suspect]
     Indication: PROPHYLAXIS AGAINST GASTROINTESTINAL ULCER
  4. TRICHLORMETHIAZIDE [Suspect]
     Indication: POLYURIA
     Dosage: 2 MG, 1X/DAY
     Route: 048
     Dates: start: 20101201, end: 20110407
  5. LASIX [Suspect]
     Indication: POLYURIA
     Dosage: 40 MG, 2X/DAY
     Route: 048
     Dates: start: 20101201
  6. LANSOPRAZOLE [Suspect]
     Indication: GASTROOESOPHAGEAL REFLUX DISEASE
     Dosage: 15 MG, 1X/DAY
     Route: 048
     Dates: start: 20101201, end: 20110410
  7. CARVEDILOL [Suspect]
     Indication: ARRHYTHMIA
     Dosage: 1.25 MG, 2X/DAY
     Route: 048
     Dates: start: 20101201
  8. ASPIRIN [Suspect]
     Indication: MYOCARDIAL INFARCTION
     Dosage: 100 MG, 1X/DAY
     Route: 048
     Dates: start: 20101201
  9. SIGMART [Suspect]
     Indication: MYOCARDIAL INFARCTION
     Dosage: 10 MG, 2X/DAY
     Route: 048
     Dates: start: 20101201, end: 20110410

REACTIONS (2)
  - INTERSTITIAL LUNG DISEASE [None]
  - CARDIAC FAILURE [None]
